FAERS Safety Report 24768558 (Version 1)
Quarter: 2024Q4

REPORT INFORMATION
  Report Type: Spontaneous
  Country: CN (occurrence: CN)
  Receive Date: 20241224
  Receipt Date: 20241224
  Transmission Date: 20250114
  Serious: Yes (Other)
  Sender: SANOFI AVENTIS
  Company Number: CN-SA-2024SA373473

PATIENT
  Age: 90 Year
  Sex: Female
  Weight: 55 kg

DRUGS (3)
  1. CLOPIDOGREL BISULFATE [Suspect]
     Active Substance: CLOPIDOGREL BISULFATE
     Indication: Antiplatelet therapy
     Dosage: 75 MG, QD
     Route: 048
     Dates: start: 20241204, end: 20241204
  2. THROMBIN [Suspect]
     Active Substance: THROMBIN
     Indication: Blood fibrinogen decreased
     Dosage: 1 ML, QD
     Route: 041
     Dates: start: 20241204, end: 20241204
  3. SODIUM CHLORIDE [Concomitant]
     Active Substance: SODIUM CHLORIDE
     Indication: Vehicle solution use
     Dosage: 250 ML, QD
     Route: 041
     Dates: start: 20241204, end: 20241204

REACTIONS (2)
  - Gastrointestinal oedema [Recovering/Resolving]
  - Haematochezia [Recovered/Resolved]

NARRATIVE: CASE EVENT DATE: 20241204
